FAERS Safety Report 9628478 (Version 1)
Quarter: 2013Q4

REPORT INFORMATION
  Report Type: Spontaneous
  Country: US (occurrence: US)
  Receive Date: 20131017
  Receipt Date: 20131017
  Transmission Date: 20140711
  Serious: Yes (Other)
  Sender: FDA-Public Use
  Company Number: US-PFIZER INC-2013293137

PATIENT
  Age: 52 Year
  Sex: Female

DRUGS (2)
  1. ESTRING [Suspect]
     Indication: VULVOVAGINAL DISCOMFORT
     Dosage: UNK
  2. ESTRING [Suspect]
     Indication: DYSPAREUNIA

REACTIONS (1)
  - Urinary tract infection [Unknown]
